FAERS Safety Report 19775215 (Version 2)
Quarter: 2021Q4

REPORT INFORMATION
  Report Type: Spontaneous
  Country: US (occurrence: US)
  Receive Date: 20210901
  Receipt Date: 20211014
  Transmission Date: 20220303
  Serious: No
  Sender: FDA-Public Use
  Company Number: US-BAUSCH-BL-2021-026502

PATIENT

DRUGS (1)
  1. LUMIFY [Suspect]
     Active Substance: BRIMONIDINE TARTRATE
     Indication: Product used for unknown indication
     Route: 047
     Dates: start: 2021

REACTIONS (4)
  - Instillation site discomfort [Unknown]
  - Instillation site pain [Recovered/Resolved]
  - Instillation site pruritus [Not Recovered/Not Resolved]
  - Instillation site lacrimation [Not Recovered/Not Resolved]

NARRATIVE: CASE EVENT DATE: 20210101
